FAERS Safety Report 14977793 (Version 1)
Quarter: 2018Q2

REPORT INFORMATION
  Report Type: Spontaneous
  Country: US (occurrence: US)
  Receive Date: 20180515
  Receipt Date: 20180515
  Transmission Date: 20180711
  Serious: Yes (Disabling, Other)
  Sender: FDA-Public Use
  Company Number: None

PATIENT
  Age: 52 Year
  Sex: Female
  Weight: 99 kg

DRUGS (1)
  1. LEVAQUIN [Suspect]
     Active Substance: LEVOFLOXACIN
     Indication: INFECTION
     Dosage: ?          QUANTITY:14 TABLET(S);?
     Route: 048
     Dates: start: 20180118, end: 20180127

REACTIONS (17)
  - Insomnia [None]
  - Ear disorder [None]
  - Tendon pain [None]
  - Liver injury [None]
  - Platelet count increased [None]
  - Dyspepsia [None]
  - Anxiety [None]
  - Vibratory sense increased [None]
  - Gait inability [None]
  - Disturbance in attention [None]
  - Weight decreased [None]
  - Panic reaction [None]
  - Pain [None]
  - Psychotic disorder [None]
  - Red blood cell count increased [None]
  - Impaired healing [None]
  - Tremor [None]

NARRATIVE: CASE EVENT DATE: 20180118
